FAERS Safety Report 26095554 (Version 1)
Quarter: 2025Q4

REPORT INFORMATION
  Report Type: Spontaneous
  Country: US (occurrence: US)
  Receive Date: 20251127
  Receipt Date: 20251127
  Transmission Date: 20260118
  Serious: Yes (Hospitalization, Other)
  Sender: ASTELLAS
  Company Number: US-ASTELLAS-2025-AER-064897

PATIENT
  Age: 73 Year
  Sex: Female

DRUGS (3)
  1. TACROLIMUS [Interacting]
     Active Substance: TACROLIMUS
     Indication: Renal and liver transplant
     Route: 065
  2. NIRMATRELVIR\RITONAVIR [Interacting]
     Active Substance: NIRMATRELVIR\RITONAVIR
     Indication: COVID-19
     Route: 065
  3. PHENYTOIN [Interacting]
     Active Substance: PHENYTOIN
     Indication: Drug level above therapeutic
     Route: 065

REACTIONS (12)
  - COVID-19 [Recovered/Resolved]
  - Meningitis [Recovered/Resolved]
  - Confusional state [Recovered/Resolved]
  - Nausea [Unknown]
  - Vomiting [Unknown]
  - Blood creatine increased [Recovered/Resolved]
  - Hypomagnesaemia [Unknown]
  - Pyrexia [Unknown]
  - Tachycardia [Recovered/Resolved]
  - Agitation [Recovered/Resolved]
  - Drug interaction [Unknown]
  - Drug interaction [Unknown]
